FAERS Safety Report 11106314 (Version 1)
Quarter: 2015Q2

REPORT INFORMATION
  Report Type: Spontaneous
  Country: US (occurrence: US)
  Receive Date: 20150512
  Receipt Date: 20150512
  Transmission Date: 20150821
  Serious: Yes (Death)
  Sender: FDA-Public Use
  Company Number: US-PFIZER INC-2015158835

PATIENT
  Age: 75 Year
  Sex: Male

DRUGS (1)
  1. SUTENT [Suspect]
     Active Substance: SUNITINIB MALATE
     Dosage: 50 MG, DAILY
     Dates: start: 20150105, end: 20150309

REACTIONS (4)
  - Death [Fatal]
  - Pain [Unknown]
  - Asthenia [Unknown]
  - Dysstasia [Unknown]

NARRATIVE: CASE EVENT DATE: 20150317
